FAERS Safety Report 6386698-X (Version None)
Quarter: 2009Q4

REPORT INFORMATION
  Report Type: 
  Country: None (occurrence: None)
  Receive Date: 20091002
  Receipt Date: 20090922
  Transmission Date: 20100525
  Serious: Yes (Hospitalization)
  Sender: FDA-Public Use
  Company Number: GB-TEVA-210202ISR

PATIENT
  Age: 83 Year
  Sex: Male

DRUGS (3)
  1. AMOXICILLIN AND CLAVULANATE POTASSIUM [Suspect]
     Indication: PNEUMONIA ASPIRATION
     Route: 042
     Dates: start: 20090714, end: 20090716
  2. AMOXICILLIN AND CLAVULANATE POTASSIUM [Suspect]
     Route: 048
     Dates: start: 20090717, end: 20090719
  3. AMOXICILLIN AND CLAVULANATE POTASSIUM [Suspect]
     Dates: start: 20090722, end: 20090723

REACTIONS (1)
  - NEUTROPENIA [None]
